FAERS Safety Report 25012994 (Version 1)
Quarter: 2025Q1

REPORT INFORMATION
  Report Type: Report from Study
  Country: DE (occurrence: DE)
  Receive Date: 20250226
  Receipt Date: 20250226
  Transmission Date: 20250408
  Serious: Yes (Death, Other)
  Sender: BAYER HEALTHCARE LLC
  Company Number: DE-BAYER-2025A023941

PATIENT

DRUGS (1)
  1. NAPROXEN [Suspect]
     Active Substance: NAPROXEN
     Indication: Myalgia

REACTIONS (4)
  - Foetal exposure during pregnancy [None]
  - Renal failure neonatal [None]
  - Premature baby [None]
  - Renal aplasia [Fatal]
